FAERS Safety Report 19689493 (Version 1)
Quarter: 2021Q3

REPORT INFORMATION
  Report Type: Report from Study
  Country: IN (occurrence: IN)
  Receive Date: 20210811
  Receipt Date: 20210811
  Transmission Date: 20211014
  Serious: Yes (Death, Other)
  Sender: FDA-Public Use
  Company Number: IN-INCYTE CORPORATION-2019IN006039

PATIENT

DRUGS (2)
  1. JAKAVI [Suspect]
     Active Substance: RUXOLITINIB
     Dosage: 20 MG, BID
     Route: 065
     Dates: start: 20200220
  2. JAKAVI [Suspect]
     Active Substance: RUXOLITINIB
     Indication: PRIMARY MYELOFIBROSIS
     Dosage: 5 MG, BID (BREAKING BY 4 PARTS)
     Route: 048
     Dates: start: 201809, end: 20200219

REACTIONS (10)
  - Decreased appetite [Unknown]
  - Haemoglobin decreased [Unknown]
  - Death [Fatal]
  - Hepatomegaly [Not Recovered/Not Resolved]
  - Malignant neoplasm progression [Unknown]
  - Splenomegaly [Not Recovered/Not Resolved]
  - Primary myelofibrosis [Unknown]
  - Platelet count decreased [Unknown]
  - Pollakiuria [Unknown]
  - Wrong technique in product usage process [Unknown]

NARRATIVE: CASE EVENT DATE: 201905
